FAERS Safety Report 12627240 (Version 1)
Quarter: 2016Q3

REPORT INFORMATION
  Report Type: Spontaneous
  Country: US (occurrence: US)
  Receive Date: 20160805
  Receipt Date: 20160805
  Transmission Date: 20161109
  Serious: Yes (Hospitalization, Other)
  Sender: FDA-Public Use
  Company Number: US-SA-2016SA142199

PATIENT
  Age: 81 Year
  Sex: Male
  Weight: 74.8 kg

DRUGS (1)
  1. PLAVIX [Suspect]
     Active Substance: CLOPIDOGREL BISULFATE
     Indication: THROMBOSIS
     Route: 048

REACTIONS (3)
  - Cerebrovascular accident [Unknown]
  - Lung neoplasm [Unknown]
  - Thrombosis [Unknown]

NARRATIVE: CASE EVENT DATE: 20160303
